FAERS Safety Report 23720011 (Version 2)
Quarter: 2024Q2

REPORT INFORMATION
  Report Type: Spontaneous
  Country: US (occurrence: US)
  Receive Date: 20240408
  Receipt Date: 20240412
  Transmission Date: 20240716
  Serious: Yes (Other)
  Sender: FDA-Public Use
  Company Number: US-MLMSERVICE-20240328-4915677-1

PATIENT
  Age: 21 Year
  Sex: Male

DRUGS (1)
  1. DOXORUBICIN HYDROCHLORIDE [Suspect]
     Active Substance: DOXORUBICIN HYDROCHLORIDE
     Dosage: UNK
     Route: 055

REACTIONS (6)
  - Ventricular hypokinesia [Unknown]
  - Cardiotoxicity [Unknown]
  - Dilated cardiomyopathy [Unknown]
  - Ejection fraction decreased [Recovering/Resolving]
  - Occupational exposure to product [Unknown]
  - Off label use [Unknown]
